FAERS Safety Report 23251624 (Version 1)
Quarter: 2023Q4

REPORT INFORMATION
  Report Type: Spontaneous
  Country: CA (occurrence: CA)
  Receive Date: 20231201
  Receipt Date: 20231201
  Transmission Date: 20240109
  Serious: Yes (Death, Hospitalization, Other)
  Sender: FDA-Public Use
  Company Number: CA-FreseniusKabi-FK202319078

PATIENT
  Age: 43 Year
  Sex: Male

DRUGS (15)
  1. GANCICLOVIR [Suspect]
     Active Substance: GANCICLOVIR
     Indication: Encephalitis cytomegalovirus
     Dosage: DOSAGE FORM: POWDER FOR SOLUTION FOR INJECTION
     Route: 040
  2. GANCICLOVIR [Suspect]
     Active Substance: GANCICLOVIR
     Route: 040
  3. BUDESONIDE [Suspect]
     Active Substance: BUDESONIDE
     Indication: Graft versus host disease in gastrointestinal tract
     Dosage: FOA - NOT SPECIFIED
     Route: 065
  4. CYCLOSPORINE [Suspect]
     Active Substance: CYCLOSPORINE
     Indication: Graft versus host disease in gastrointestinal tract
     Dosage: FOA - CAPSULE SOFT
     Route: 065
  5. CYCLOSPORINE [Suspect]
     Active Substance: CYCLOSPORINE
     Dosage: FOA - NOT SPECIFIED?DOSE - 50 MG/KG
     Route: 065
  6. CYCLOPHOSPHAMIDE [Suspect]
     Active Substance: CYCLOPHOSPHAMIDE
     Indication: Product used for unknown indication
     Dosage: FOA - NOT SPECIFIED?DOSE - 50 MG/KG
     Route: 065
  7. CYTOGAM [Suspect]
     Active Substance: HUMAN CYTOMEGALOVIRUS IMMUNE GLOBULIN
     Indication: Encephalitis cytomegalovirus
     Dosage: DOSE - 0.5 GM
     Route: 029
  8. CYTOGAM [Suspect]
     Active Substance: HUMAN CYTOMEGALOVIRUS IMMUNE GLOBULIN
     Dosage: FOA - SOLUTION INTRAVENOUS?DOSE - 0.25 GM
     Route: 029
  9. FOSCARNET SODIUM [Suspect]
     Active Substance: FOSCARNET SODIUM
     Indication: Encephalitis cytomegalovirus
     Dosage: DOSE - 180 MG/KG
  10. FOSCARNET SODIUM [Suspect]
     Active Substance: FOSCARNET SODIUM
     Dosage: FOA - NOT SPECIFIED?DOSE - 18 MG/KG
  11. RITUXIMAB [Suspect]
     Active Substance: RITUXIMAB
     Indication: Epstein-Barr viraemia
     Dosage: 2 REGIMEN
     Route: 065
  12. VALGANCICLOVIR HYDROCHLORIDE [Suspect]
     Active Substance: VALGANCICLOVIR HYDROCHLORIDE
     Indication: Cytomegalovirus infection reactivation
     Route: 065
  13. THYMOGLOBULIN [Suspect]
     Active Substance: LAPINE T-LYMPHOCYTE IMMUNE GLOBULIN
     Indication: Prophylaxis against graft versus host disease
     Dosage: FOA - POWDER FORSOLUTIONINTRAVENOUS?2 MG/KG
     Route: 065
  14. FLUDARABINE [Concomitant]
     Active Substance: FLUDARABINE PHOSPHATE
     Indication: Acute myeloid leukaemia
     Dosage: DOSE 30 MG/M2
     Route: 065
  15. PREVYMIS [Concomitant]
     Active Substance: LETERMOVIR
     Indication: Antiviral prophylaxis
     Dosage: FOA TABLET
     Route: 065

REACTIONS (14)
  - Acute kidney injury [Fatal]
  - BK virus infection [Fatal]
  - Cystitis haemorrhagic [Fatal]
  - Cytomegalovirus infection reactivation [Fatal]
  - Drug ineffective [Fatal]
  - Encephalitis cytomegalovirus [Fatal]
  - Epstein-Barr viraemia [Fatal]
  - Generalised oedema [Fatal]
  - Lung disorder [Fatal]
  - Myelosuppression [Fatal]
  - Nephropathy toxic [Fatal]
  - Off label use [Fatal]
  - Pancytopenia [Fatal]
  - Respiratory distress [Fatal]
